FAERS Safety Report 5754134-X (Version None)
Quarter: 2008Q2

REPORT INFORMATION
  Report Type: 
  Country: None (occurrence: None)
  Receive Date: 20080527
  Receipt Date: 20080507
  Transmission Date: 20081010
  Serious: Yes (Life-Threatening, Hospitalization, Other)
  Sender: FDA-Public Use
  Company Number: 2008S1007982

PATIENT
  Age: 67 Year
  Sex: Female

DRUGS (40)
  1. BISOPROLOL FUMARATE [Suspect]
     Indication: DRUG USE FOR UNKNOWN INDICATION
     Dosage: ORAL
     Route: 048
     Dates: start: 20071012, end: 20071019
  2. BACTROBAN [Suspect]
     Indication: DRUG USE FOR UNKNOWN INDICATION
     Dates: start: 20071001, end: 20071005
  3. VANCOMYCIN [Suspect]
     Indication: DRUG USE FOR UNKNOWN INDICATION
     Dosage: ORAL
     Route: 048
     Dates: start: 20071012, end: 20071018
  4. OMEPRAZOLE [Suspect]
     Indication: DRUG USE FOR UNKNOWN INDICATION
     Dosage: ORAL
     Route: 048
     Dates: start: 20071014, end: 20071015
  5. ACETAMINOPHEN [Suspect]
     Indication: DRUG USE FOR UNKNOWN INDICATION
     Dosage: ORAL
     Route: 048
     Dates: start: 20071016, end: 20071021
  6. ACETAMINOPHEN [Suspect]
     Indication: DRUG USE FOR UNKNOWN INDICATION
     Dosage: ORAL
     Route: 048
     Dates: start: 20071005
  7. NORMISON (TEMAZEPAM) [Suspect]
     Indication: DRUG USE FOR UNKNOWN INDICATION
     Dates: start: 20071005, end: 20071005
  8. ARIXTRA [Suspect]
     Indication: DRUG USE FOR UNKNOWN INDICATION
     Dates: start: 20071006, end: 20071006
  9. AMILORIDE HCL [Concomitant]
     Indication: DRUG USE FOR UNKNOWN INDICATION
     Dates: start: 20071011, end: 20071019
  10. CHLORPHENIRAMINE MALEATE [Suspect]
     Indication: DRUG USE FOR UNKNOWN INDICATION
     Dates: start: 20071018, end: 20071019
  11. RANITIDINE [Suspect]
     Indication: DRUG USE FOR UNKNOWN INDICATION
     Dates: start: 20071019, end: 20071021
  12. IMMUNE GLOBULIN (HUMAN) [Suspect]
     Indication: DRUG USE FOR UNKNOWN INDICATION
     Dates: start: 20071022, end: 20071023
  13. DICLOFENAC SODIUM [Suspect]
     Indication: DRUG USE FOR UNKNOWN INDICATION
     Dates: start: 20071003, end: 20071005
  14. DICLOFENAC SODIUM [Suspect]
     Indication: DRUG USE FOR UNKNOWN INDICATION
     Dates: start: 20070928
  15. DICLOFENAC SODIUM [Suspect]
     Indication: DRUG USE FOR UNKNOWN INDICATION
     Dates: start: 20070930
  16. ZINACEF /00454601/ (CEFUROXIME) [Suspect]
     Indication: DRUG USE FOR UNKNOWN INDICATION
     Dates: start: 20071006, end: 20071007
  17. ACETAMINOPHEN [Suspect]
     Indication: DRUG USE FOR UNKNOWN INDICATION
     Dates: start: 20071016, end: 20071021
  18. ACETAMINOPHEN [Suspect]
     Indication: DRUG USE FOR UNKNOWN INDICATION
     Dates: start: 20071005
  19. MORPHINE [Suspect]
     Indication: DRUG USE FOR UNKNOWN INDICATION
     Dates: start: 20071005, end: 20071006
  20. TRAMADOL HCL [Suspect]
     Indication: DRUG USE FOR UNKNOWN INDICATION
     Dates: start: 20071006, end: 20071006
  21. FUROSEMIDE [Suspect]
     Indication: DRUG USE FOR UNKNOWN INDICATION
     Dates: start: 20071006, end: 20071006
  22. DIOVAN HCT [Concomitant]
  23. CARDURA [Concomitant]
  24. SERETIDE [Concomitant]
  25. CHLORHEXIDINE GLUCONATE [Concomitant]
  26. ACETYLCYSTEINE [Concomitant]
  27. CIPROFLOXACIN HCL [Concomitant]
  28. ASPIRIN [Concomitant]
  29. CLEXANE [Concomitant]
  30. GLYCERYL [Concomitant]
  31. JEVITY [Concomitant]
  32. LACTULOSE [Concomitant]
  33. AZACTAM [Concomitant]
  34. MOXIFLOXACIN HCL [Concomitant]
  35. CETIRIZINE HCL [Concomitant]
  36. FRESUBIN [Concomitant]
  37. PARAFFIN [Concomitant]
  38. SENOKOT [Concomitant]
  39. ONDANSETRON [Concomitant]
  40. RED BLOOD CELLS [Concomitant]

REACTIONS (2)
  - RASH [None]
  - TOXIC EPIDERMAL NECROLYSIS [None]
